FAERS Safety Report 9936860 (Version 1)
Quarter: 2014Q1

REPORT INFORMATION
  Report Type: Spontaneous
  Country: US (occurrence: None)
  Receive Date: 20140114
  Receipt Date: 20140114
  Transmission Date: 20141002
  Serious: Yes (Hospitalization)
  Sender: FDA-Public Use
  Company Number: E2020-11811-SPO-US

PATIENT
  Age: 57 Year
  Sex: Male

DRUGS (1)
  1. ARICEPT (DONEPEZIL HYDROCHLORIDE) [Suspect]
     Indication: PRESENILE DEMENTIA
     Dosage: 5 MG, 1 IN 1 D, ORAL
     Route: 048
     Dates: start: 20120621, end: 20121126

REACTIONS (4)
  - Anxiety [None]
  - Paranoia [None]
  - Agitation [None]
  - Anger [None]
